FAERS Safety Report 12304970 (Version 1)
Quarter: 2016Q2

REPORT INFORMATION
  Report Type: Spontaneous
  Country: MX (occurrence: MX)
  Receive Date: 20160426
  Receipt Date: 20160426
  Transmission Date: 20160815
  Serious: Yes (Other)
  Sender: FDA-Public Use
  Company Number: MX-SA-2016SA079255

PATIENT
  Age: 80 Year
  Sex: Female
  Weight: 60 kg

DRUGS (4)
  1. CELEBREX [Concomitant]
     Active Substance: CELECOXIB
     Indication: OSTEOARTHRITIS
  2. ARAVA [Suspect]
     Active Substance: LEFLUNOMIDE
     Indication: OSTEOARTHRITIS
     Route: 048
     Dates: start: 2009
  3. GELICART [Suspect]
     Active Substance: DIETARY SUPPLEMENT
     Indication: OSTEOARTHRITIS
     Route: 048
     Dates: start: 2015
  4. ALMETEC [Concomitant]
     Active Substance: OLMESARTAN MEDOXOMIL
     Route: 048
     Dates: start: 2013

REACTIONS (6)
  - Off label use [Unknown]
  - Spinal column injury [Not Recovered/Not Resolved]
  - Fall [Unknown]
  - Cataract [Not Recovered/Not Resolved]
  - Hand fracture [Recovered/Resolved]
  - Product use issue [Unknown]

NARRATIVE: CASE EVENT DATE: 2009
